FAERS Safety Report 8985738 (Version 1)
Quarter: 2012Q4

REPORT INFORMATION
  Report Type: 
  Country: ES (occurrence: ES)
  Receive Date: 20121226
  Receipt Date: 20121226
  Transmission Date: 20130627
  Serious: Yes (Hospitalization)
  Sender: FDA-Public Use
  Company Number: ES-ABBOTT-12P-144-1022897-00

PATIENT
  Age: 59 Year
  Sex: Female

DRUGS (1)
  1. INFLUVAC [Suspect]
     Indication: IMMUNISATION
     Route: 030
     Dates: start: 201209, end: 201209

REACTIONS (1)
  - Paraesthesia [Recovering/Resolving]
